FAERS Safety Report 23434161 (Version 2)
Quarter: 2024Q1

REPORT INFORMATION
  Report Type: Spontaneous
  Country: JP (occurrence: JP)
  Receive Date: 20240123
  Receipt Date: 20240329
  Transmission Date: 20240409
  Serious: Yes (Death, Other)
  Sender: FDA-Public Use
  Company Number: JP-MSD-M2024-01116

PATIENT
  Age: 79 Year
  Sex: Male

DRUGS (3)
  1. KEYTRUDA [Suspect]
     Active Substance: PEMBROLIZUMAB
     Indication: Gingival cancer
     Dosage: 200 MILLIGRAM, Q3W
     Route: 041
     Dates: start: 20210531, end: 20211018
  2. CARBOPLATIN [Concomitant]
     Active Substance: CARBOPLATIN
     Indication: Gingival cancer
     Dosage: UNK
     Route: 065
     Dates: start: 20210531, end: 20211018
  3. FLUOROURACIL [Concomitant]
     Active Substance: FLUOROURACIL
     Indication: Gingival cancer
     Dosage: UNK
     Route: 065
     Dates: start: 20210531, end: 20211018

REACTIONS (5)
  - Embolic cerebral infarction [Unknown]
  - Embolism arterial [Unknown]
  - Immune-mediated enterocolitis [Unknown]
  - Pulmonary embolism [Unknown]
  - Malignant neoplasm progression [Fatal]

NARRATIVE: CASE EVENT DATE: 20210705
